FAERS Safety Report 8575261-8 (Version None)
Quarter: 2012Q3

REPORT INFORMATION
  Report Type: 
  Country: None (occurrence: None)
  Receive Date: 20120807
  Receipt Date: 20120802
  Transmission Date: 20120928
  Serious: Yes (Hospitalization)
  Sender: FDA-Public Use
  Company Number: US-AMGEN-USASP2012048569

PATIENT
  Sex: Female

DRUGS (4)
  1. ENBREL [Suspect]
     Indication: ANKYLOSING SPONDYLITIS
  2. ENBREL [Suspect]
     Indication: RHEUMATOID ARTHRITIS
     Dosage: 50 MG, QWK
     Dates: start: 20100219
  3. METHOTREXATE SODIUM [Concomitant]
     Dosage: 1 MG, QWK
     Dates: start: 20050101
  4. OXYGEN [Concomitant]
     Dosage: AT NIGHT

REACTIONS (7)
  - IMPAIRED GASTRIC EMPTYING [None]
  - BIOPSY ARTERY [None]
  - INJECTION SITE PAIN [None]
  - CATARACT [None]
  - BRONCHITIS [None]
  - DRUG INEFFECTIVE [None]
  - DIABETES MELLITUS [None]
